FAERS Safety Report 6766238-3 (Version None)
Quarter: 2010Q2

REPORT INFORMATION
  Report Type: 
  Country: None (occurrence: None)
  Receive Date: 20100611
  Receipt Date: 20100601
  Transmission Date: 20101027
  Serious: Yes (Other)
  Sender: FDA-Public Use
  Company Number: US-BAYER-201016150BCC

PATIENT
  Age: 50 Year
  Sex: Female
  Weight: 61 kg

DRUGS (5)
  1. PHILLIPS MILK OF MAGNESIA CHERRY [Suspect]
     Indication: CONSTIPATION
     Dosage: BOTTLE COUNT 12OZ
     Route: 048
     Dates: start: 20100529
  2. PHILLIPS MILK OF MAGNESIA CHERRY [Suspect]
     Dosage: TOOK 4 TABLESPOON / BOTTLE COUNT 12OZ
     Route: 048
     Dates: start: 20100301
  3. ATIVAN [Concomitant]
     Route: 065
  4. OXYCODONE [Concomitant]
     Route: 065
  5. TAXOL [Concomitant]
     Route: 065

REACTIONS (5)
  - ASTHENIA [None]
  - DIARRHOEA [None]
  - ILL-DEFINED DISORDER [None]
  - NAUSEA [None]
  - RESPIRATORY ARREST [None]
